FAERS Safety Report 8419422-7 (Version None)
Quarter: 2012Q2

REPORT INFORMATION
  Report Type: 
  Country: None (occurrence: None)
  Receive Date: 20120601
  Receipt Date: 20120601
  Transmission Date: 20120825
  Serious: Yes (Other)
  Sender: FDA-Public Use
  Company Number: None

PATIENT
  Age: 44 Year
  Sex: Female
  Weight: 97.5234 kg

DRUGS (1)
  1. PROPRANOLOL [Suspect]
     Indication: MIGRAINE
     Dosage: ONCE IV DRIP  ONE DOSE
     Route: 042
     Dates: start: 20120529, end: 20120529

REACTIONS (3)
  - AGITATION [None]
  - CHEST PAIN [None]
  - PANIC REACTION [None]
